FAERS Safety Report 20673142 (Version 1)
Quarter: 2022Q2

REPORT INFORMATION
  Report Type: Spontaneous
  Country: US (occurrence: None)
  Receive Date: 20220403
  Receipt Date: 20220403
  Transmission Date: 20220720
  Serious: Yes (Hospitalization)
  Sender: FDA-Public Use
  Company Number: None

PATIENT
  Age: 90 Year
  Sex: Male

DRUGS (1)
  1. DULOXETINE HYDROCHLORIDE [Suspect]
     Active Substance: DULOXETINE HYDROCHLORIDE
     Indication: Neuropathy peripheral
     Dosage: 60 MG EVERY DAY PO
     Route: 048
     Dates: start: 20220320, end: 20220327

REACTIONS (5)
  - Dizziness [None]
  - Hypertension [None]
  - Tachycardia [None]
  - Atrial fibrillation [None]
  - Cholelithiasis [None]

NARRATIVE: CASE EVENT DATE: 20220327
